FAERS Safety Report 12290652 (Version 6)
Quarter: 2016Q2

REPORT INFORMATION
  Report Type: Report from Study
  Country: TR (occurrence: TR)
  Receive Date: 20160421
  Receipt Date: 20160516
  Transmission Date: 20160815
  Serious: Yes (Life-Threatening, Hospitalization)
  Sender: FDA-Public Use
  Company Number: TR-B.I. PHARMACEUTICALS,INC./RIDGEFIELD-2016-BI-23118BI

PATIENT
  Age: 76 Year
  Sex: Female
  Weight: 74 kg

DRUGS (13)
  1. DABIGATRAN [Suspect]
     Active Substance: DABIGATRAN
     Dosage: 220 MG
     Route: 048
     Dates: start: 20160505
  2. DABIGATRAN [Suspect]
     Active Substance: DABIGATRAN
     Dosage: 220 MG
     Route: 048
     Dates: start: 20160430, end: 20160504
  3. NAC [Concomitant]
     Indication: CHRONIC OBSTRUCTIVE PULMONARY DISEASE
     Dosage: DOSE PER APPLICATION AND DAILY DOSE: 900
     Route: 048
  4. DELIX [Concomitant]
     Active Substance: RAMIPRIL
     Indication: HYPERTENSION
     Dosage: DOSE PER APPLICATION AND DAILY DOSE: 2.5
     Route: 048
  5. BELOC [Concomitant]
     Active Substance: METOPROLOL TARTRATE
     Indication: CORONARY ARTERY DISEASE
     Dosage: DOSE PER APPLICATION AND DAILY DOSE: 50
     Route: 048
  6. DELIX [Concomitant]
     Active Substance: RAMIPRIL
     Dosage: DOSE PER APPLICATION AND DAILY DOSE: 10/20
     Route: 048
  7. AMLOKARD [Concomitant]
     Indication: HYPERTENSION
     Dosage: 5 MG
     Route: 048
     Dates: start: 20160420
  8. LASIX [Concomitant]
     Active Substance: FUROSEMIDE
     Indication: CARDIAC FAILURE CONGESTIVE
     Dosage: DOSE PER APPLICATION AND DAILY DOSE: 40
     Route: 048
  9. ENEAS [Concomitant]
     Active Substance: ENALAPRIL MALEATE\NITRENDIPINE
     Indication: HYPERTENSION
     Dosage: DOSE PER APP AND DAILY DOSE:10/20
     Route: 048
  10. ATOR [Concomitant]
     Active Substance: ATORVASTATIN CALCIUM
     Indication: HYPERLIPIDAEMIA
     Dosage: DOSE PER APPLICATION AND DAILY DOSE: 20
     Route: 048
  11. CELOFARM [Concomitant]
     Indication: DIABETES MELLITUS
     Dosage: DOSE PER APP AND DAILY DOSE: 1000
     Route: 048
  12. DABIGATRAN [Suspect]
     Active Substance: DABIGATRAN
     Indication: ATRIAL FIBRILLATION
     Dosage: 220 MG
     Route: 048
     Dates: start: 20160115, end: 20160411
  13. PLAVIX [Concomitant]
     Active Substance: CLOPIDOGREL BISULFATE
     Indication: CORONARY ARTERY DISEASE
     Dosage: DOSE PER APPLICATION AND DAILY DOSE: 75
     Route: 048
     Dates: start: 20160115

REACTIONS (4)
  - Ventricular arrhythmia [Recovered/Resolved]
  - Renal failure [Recovered/Resolved]
  - Hepatitis toxic [Recovered/Resolved]
  - Multiple organ dysfunction syndrome [Recovered/Resolved]

NARRATIVE: CASE EVENT DATE: 20160411
